FAERS Safety Report 8452485-1 (Version None)
Quarter: 2012Q2

REPORT INFORMATION
  Report Type: 
  Country: None (occurrence: None)
  Receive Date: 20120620
  Receipt Date: 20120424
  Transmission Date: 20120825
  Serious: No
  Sender: FDA-Public Use
  Company Number: US-VERTEX PHARMACEUTICALS INC.-AE-2012-005280

PATIENT
  Sex: Female
  Weight: 64.468 kg

DRUGS (10)
  1. ATIVAN [Concomitant]
     Indication: ANXIETY
     Route: 048
  2. LORTAB [Concomitant]
     Indication: PAIN
     Route: 048
  3. HAIR/NAIL/SKIN VITAMIN [Concomitant]
     Route: 048
  4. RIBAVIRIN [Concomitant]
     Indication: HEPATITIS C
     Route: 048
     Dates: start: 20120409
  5. AMITRIPTYLINE HCL [Concomitant]
     Route: 048
  6. VITAMIN E [Concomitant]
     Route: 048
  7. ASCORBIC ACID [Concomitant]
     Route: 048
  8. INCIVEK [Suspect]
     Indication: HEPATITIS C
     Route: 048
     Dates: start: 20120409
  9. PEGASYS [Concomitant]
     Indication: HEPATITIS C
     Route: 058
     Dates: start: 20120409
  10. CALCIUM [Concomitant]
     Route: 048

REACTIONS (3)
  - VOMITING [None]
  - CONSTIPATION [None]
  - THROAT IRRITATION [None]
